FAERS Safety Report 6366304-0 (Version None)
Quarter: 2009Q3

REPORT INFORMATION
  Report Type: 
  Country: None (occurrence: None)
  Receive Date: 20090921
  Receipt Date: 20090821
  Transmission Date: 20100115
  Serious: No
  Sender: FDA-Public Use
  Company Number: US-BAYER-200922999NA

PATIENT
  Age: 87 Year
  Sex: Male

DRUGS (2)
  1. BETAPACE AF [Suspect]
     Indication: ATRIAL FIBRILLATION
     Dosage: TOTAL DAILY DOSE: 320 MG
     Dates: start: 19960101
  2. SOTALOL HYDROCHLORIDE [Suspect]
     Indication: ATRIAL FIBRILLATION

REACTIONS (2)
  - ATRIAL FIBRILLATION [None]
  - CARDIAC DISORDER [None]
